FAERS Safety Report 15233262 (Version 1)
Quarter: 2018Q4

REPORT INFORMATION
  Report Type: Spontaneous
  Country: US (occurrence: US)
  Receive Date: 20180802
  Receipt Date: 20180802
  Transmission Date: 20190204
  Serious: Yes (Hospitalization)
  Sender: FDA-Public Use
  Company Number: US-TEVA-2018-US-934753

PATIENT
  Age: 71 Year
  Sex: Male

DRUGS (23)
  1. ZIPRASIDONE. [Suspect]
     Active Substance: ZIPRASIDONE
     Indication: PSYCHOTIC SYMPTOM
     Dosage: INITIATED ON DAY 19 AND TITRATED TO 20 MG ORALLY TWICE A DAY OVER THE NEXT FEW DAYS
     Route: 048
  2. AMPICILLIN [Concomitant]
     Active Substance: AMPICILLIN
     Indication: URINARY TRACT INFECTION
     Route: 042
  3. HALOPERIDOL. [Suspect]
     Active Substance: HALOPERIDOL
     Indication: DELIRIUM
     Route: 051
  4. DIVALPROEX SPRINKLES [Interacting]
     Active Substance: DIVALPROEX SODIUM
     Indication: AGITATION
     Route: 048
  5. DIVALPROEX SPRINKLES [Interacting]
     Active Substance: DIVALPROEX SODIUM
     Indication: AGITATION
     Dosage: BY DAY 21, DOSE TITRATED 250MG IN THE MORNING AND 750MG AT BEDTIME
     Route: 048
  6. DIVALPROEX SPRINKLES [Interacting]
     Active Substance: DIVALPROEX SODIUM
     Indication: AGITATION
     Dosage: AFTER RE-INITIATION ON DAY 43; AND TITRATED TO 1000 MG EVERY MORNING AND 1500 MG AT BEDTIME
     Route: 048
  7. DIAZEPAM. [Interacting]
     Active Substance: DIAZEPAM
     Indication: CATATONIA
     Dosage: UP TO 60MG DAILY (LONGER-ACTING)
     Route: 042
  8. LORAZEPAM. [Interacting]
     Active Substance: LORAZEPAM
     Indication: CATATONIA
     Dosage: THREE TIMES A DAY AS NEEDED
     Route: 042
  9. LORAZEPAM. [Interacting]
     Active Substance: LORAZEPAM
     Indication: CATATONIA
     Dosage: EVERY 4 H AT BEDTIME
     Route: 042
  10. AMLODIPINE [Concomitant]
     Active Substance: AMLODIPINE BESYLATE
     Route: 065
  11. LORAZEPAM. [Interacting]
     Active Substance: LORAZEPAM
     Indication: CATATONIA
     Dosage: INITIATED ON DAY 2
     Route: 042
  12. ZIPRASIDONE. [Suspect]
     Active Substance: ZIPRASIDONE
     Indication: PSYCHOTIC SYMPTOM
     Dosage: HE WAS TRANSITIONED TO INTRAMUSCULAR (IM) ZIPRASIDONE ON DAY 27
     Route: 030
  13. ASPIRIN. [Concomitant]
     Active Substance: ASPIRIN
     Route: 065
  14. DIVALPROEX SPRINKLES [Interacting]
     Active Substance: DIVALPROEX SODIUM
     Indication: AGITATION
     Dosage: EVERY 6 HOUR AS NEEDED
     Route: 042
  15. LORAZEPAM. [Interacting]
     Active Substance: LORAZEPAM
     Indication: CATATONIA
     Dosage: PARENTERAL LORAZEPAM ON DAY 17
     Route: 051
  16. ATENOLOL. [Concomitant]
     Active Substance: ATENOLOL
     Route: 065
  17. SIMVASTATIN. [Concomitant]
     Active Substance: SIMVASTATIN
     Dosage: AT BEDTIME
     Route: 065
  18. VANCOMYCIN [Concomitant]
     Active Substance: VANCOMYCIN
     Indication: CLOSTRIDIUM DIFFICILE INFECTION
     Route: 048
  19. OLANZAPINE. [Suspect]
     Active Substance: OLANZAPINE
     Indication: PSYCHOTIC DISORDER
     Dosage: AT BEDTIME WAS INITIATED ON DAY 16
     Route: 048
  20. LORAZEPAM. [Interacting]
     Active Substance: LORAZEPAM
     Indication: CATATONIA
     Dosage: LATER, THE DOSE WAS TITRATED TO 2MG THREE TIMES A DAY. LATER, IT WAS TAPERED AND STOPPED BY DAY 15
     Route: 042
  21. DIVALPROEX SPRINKLES [Interacting]
     Active Substance: DIVALPROEX SODIUM
     Indication: AGITATION
     Dosage: EVERY 2 H AS NEEDED WAS STARTED ON DAY 3 OF HOSPITALISATION
     Route: 042
  22. TAMSULOSIN [Concomitant]
     Active Substance: TAMSULOSIN
     Dosage: AT BEDTIME
     Route: 065
  23. CEFTRIAXONE. [Concomitant]
     Active Substance: CEFTRIAXONE
     Indication: URINARY TRACT INFECTION
     Route: 042

REACTIONS (8)
  - Delirium [Recovering/Resolving]
  - Iron deficiency anaemia [Unknown]
  - Mania [Recovering/Resolving]
  - Psychotic disorder [Recovered/Resolved]
  - Drug interaction [Recovering/Resolving]
  - Catatonia [Recovering/Resolving]
  - Delirium [Recovered/Resolved]
  - Agitation [Recovered/Resolved]
